FAERS Safety Report 14190569 (Version 1)
Quarter: 2017Q4

REPORT INFORMATION
  Report Type: Spontaneous
  Country: US (occurrence: US)
  Receive Date: 20171114
  Receipt Date: 20171114
  Transmission Date: 20180321
  Serious: No
  Sender: FDA-Public Use
  Company Number: None

PATIENT
  Sex: Female
  Weight: 110.25 kg

DRUGS (7)
  1. VITAMIN C [Concomitant]
     Active Substance: ASCORBIC ACID
  2. MELATONIN [Concomitant]
     Active Substance: MELATONIN
  3. FLUOXETINE [Suspect]
     Active Substance: FLUOXETINE HYDROCHLORIDE
     Indication: DEPRESSION
     Dosage: ?          QUANTITY:1 CAPSULE(S);?
     Route: 048
  4. VITAMIN B SUPPLEMENT [Concomitant]
  5. BIOTIN [Concomitant]
     Active Substance: BIOTIN
  6. FLUOXETINE [Suspect]
     Active Substance: FLUOXETINE HYDROCHLORIDE
     Indication: ANXIETY
     Dosage: ?          QUANTITY:1 CAPSULE(S);?
     Route: 048
  7. CINNAMON. [Concomitant]
     Active Substance: CINNAMON

REACTIONS (6)
  - Malaise [None]
  - Hot flush [None]
  - Dizziness [None]
  - Palpitations [None]
  - Nausea [None]
  - Fall [None]

NARRATIVE: CASE EVENT DATE: 20171113
